FAERS Safety Report 4881143-5 (Version None)
Quarter: 2005Q4

REPORT INFORMATION
  Report Type: 
  Country: None (occurrence: None)
  Receive Date: 20051223
  Receipt Date: 20050916
  Transmission Date: 20060501
  Serious: No
  Sender: FDA-Public Use
  Company Number: 05P-163-0311156-00

PATIENT
  Age: 55 Year
  Sex: Female
  Weight: 54.4316 kg

DRUGS (5)
  1. HUMIRA [Suspect]
     Indication: RHEUMATOID ARTHRITIS
     Dosage: 40 MG, 1 IN 2 WK, SUBCUTANEOUS
     Route: 058
     Dates: start: 20050915
  2. HYDROXYCHLOROQUINE PHOSPHATE [Concomitant]
  3. PREDNISONE [Concomitant]
  4. FOLIC ACID [Concomitant]
  5. NAPROXEN SODIUM [Concomitant]

REACTIONS (2)
  - INJECTION SITE IRRITATION [None]
  - INJECTION SITE NODULE [None]
